FAERS Safety Report 4786486-1 (Version None)
Quarter: 2005Q3

REPORT INFORMATION
  Report Type: 
  Country: None (occurrence: None)
  Receive Date: 20050914
  Receipt Date: 20050209
  Transmission Date: 20060218
  Serious: Yes (Other)
  Sender: FDA-Public Use
  Company Number: 163-20785-05020160

PATIENT
  Age: 70 Year
  Sex: Male

DRUGS (9)
  1. THALOMID [Suspect]
     Indication: MULTIPLE MYELOMA
     Dosage: 200 MG, DAILY, ORAL; 150 MG, DAILY, ORAL
     Route: 048
     Dates: start: 20020522, end: 20050101
  2. THALOMID [Suspect]
     Indication: MULTIPLE MYELOMA
     Dosage: 200 MG, DAILY, ORAL; 150 MG, DAILY, ORAL
     Route: 048
     Dates: start: 20050101
  3. NORVASC (AMLODIPINE BESILATE) (UNKNOWN) [Concomitant]
  4. CARDURA (DOXAZOSIN MESILATE) (UNKNOWN) [Concomitant]
  5. LOVASTATIN (LOVASTATIN) (UNKNOWN) [Concomitant]
  6. COUMADIN [Concomitant]
  7. PRAVACHOL [Concomitant]
  8. NEXIUM [Concomitant]
  9. MVI (MVI 3) [Concomitant]

REACTIONS (2)
  - DEEP VEIN THROMBOSIS [None]
  - TREMOR [None]
